FAERS Safety Report 10271862 (Version 1)
Quarter: 2014Q3

REPORT INFORMATION
  Report Type: Spontaneous
  Country: TR (occurrence: TR)
  Receive Date: 20140702
  Receipt Date: 20140702
  Transmission Date: 20150326
  Serious: Yes (Life-Threatening, Hospitalization, Other)
  Sender: FDA-Public Use
  Company Number: PHHY2014TR077896

PATIENT
  Age: 36 Year
  Sex: Female

DRUGS (1)
  1. VERAPAMIL [Suspect]
     Active Substance: VERAPAMIL HYDROCHLORIDE
     Dosage: 2 G, UNK

REACTIONS (9)
  - Suicidal ideation [Unknown]
  - Acute respiratory distress syndrome [Recovering/Resolving]
  - Tachypnoea [Recovering/Resolving]
  - Dyspnoea [Recovering/Resolving]
  - Loss of consciousness [Recovered/Resolved]
  - Intentional overdose [Unknown]
  - Hypoxia [Recovering/Resolving]
  - Toxicity to various agents [Unknown]
  - Cardiovascular insufficiency [Unknown]
